FAERS Safety Report 9741964 (Version 1)
Quarter: 2013Q4

REPORT INFORMATION
  Report Type: Spontaneous
  Country: US (occurrence: US)
  Receive Date: 20131210
  Receipt Date: 20131210
  Transmission Date: 20140711
  Serious: No
  Sender: FDA-Public Use
  Company Number: US-PFIZER INC-2013348442

PATIENT
  Age: 62 Year
  Sex: Male
  Weight: 97.51 kg

DRUGS (7)
  1. TESTOSTERONE CIPIONATE [Suspect]
     Dosage: UNK
     Dates: start: 20130828
  2. SPIRONOLACTONE [Interacting]
     Dosage: 25 MG, 1X/DAY
     Route: 048
  3. METOPROLOL [Concomitant]
     Dosage: UNK
  4. HYDROCHLOROTHIAZIDE [Concomitant]
     Dosage: UNK
  5. AMBIEN [Concomitant]
     Dosage: UNK
  6. NABUMETONE [Concomitant]
     Dosage: 500 MG, UNK
  7. LISINOPRIL [Concomitant]
     Dosage: UNK

REACTIONS (1)
  - Drug interaction [Unknown]
